FAERS Safety Report 7058923-3 (Version None)
Quarter: 2010Q4

REPORT INFORMATION
  Report Type: 
  Country: None (occurrence: None)
  Receive Date: 20101024
  Receipt Date: 20101011
  Transmission Date: 20110411
  Serious: Yes (Hospitalization)
  Sender: FDA-Public Use
  Company Number: US-ELI_LILLY_AND_COMPANY-US201010003283

PATIENT
  Sex: Female

DRUGS (6)
  1. FORTEO [Suspect]
     Indication: OSTEOPOROSIS
     Dosage: 20 UG, DAILY (1/D)
     Dates: start: 20090401
  2. CRESTOR [Concomitant]
  3. PHENOBARBITAL [Concomitant]
  4. PHENYTOIN [Concomitant]
  5. SERTRALINE HYDROCHLORIDE [Concomitant]
     Dosage: 100 MG, UNKNOWN
  6. VITAMIN TAB [Concomitant]

REACTIONS (12)
  - APHAGIA [None]
  - DIARRHOEA [None]
  - DYSPNOEA [None]
  - ERUCTATION [None]
  - FLATULENCE [None]
  - HOSPITALISATION [None]
  - HYPERHIDROSIS [None]
  - INTESTINAL FUNCTIONAL DISORDER [None]
  - MALAISE [None]
  - NAUSEA [None]
  - NERVOUSNESS [None]
  - VOMITING [None]
